FAERS Safety Report 19268130 (Version 1)
Quarter: 2021Q2

REPORT INFORMATION
  Report Type: Spontaneous
  Country: US (occurrence: US)
  Receive Date: 20210517
  Receipt Date: 20210517
  Transmission Date: 20210717
  Serious: Yes (Hospitalization)
  Sender: FDA-Public Use
  Company Number: None

PATIENT
  Age: 22 Year
  Sex: Female
  Weight: 117.93 kg

DRUGS (2)
  1. ETESEVIMAB 700MG/20ML [Suspect]
     Active Substance: ETESEVIMAB
     Indication: COVID-19
     Dosage: ?          OTHER ROUTE:IVPB?
  2. BAMLANIVIMAB 700MG/20ML [Suspect]
     Active Substance: BAMLANIVIMAB
     Indication: COVID-19
     Dosage: ?          OTHER ROUTE:IVPB?

REACTIONS (2)
  - Back pain [None]
  - Chest discomfort [None]

NARRATIVE: CASE EVENT DATE: 20210513
